FAERS Safety Report 7138411-6 (Version None)
Quarter: 2010Q4

REPORT INFORMATION
  Report Type: 
  Country: None (occurrence: None)
  Receive Date: 20101206
  Receipt Date: 20101122
  Transmission Date: 20110411
  Serious: Yes (Hospitalization)
  Sender: FDA-Public Use
  Company Number: GB-ELI_LILLY_AND_COMPANY-GB201011006459

PATIENT
  Age: 65 Year
  Sex: Male

DRUGS (7)
  1. GEMCITABINE HCL [Suspect]
     Indication: LUNG NEOPLASM MALIGNANT
     Dosage: 2204 MG, DAILY (1/D)
     Route: 042
     Dates: start: 20101001
  2. CARBOPLATIN [Suspect]
     Indication: LUNG NEOPLASM MALIGNANT
     Dosage: 430 MG, DAILY (1/D)
     Route: 042
     Dates: start: 20101001
  3. OTHER PHARMA COMPANY INV DRUG [Suspect]
     Indication: LUNG NEOPLASM MALIGNANT
     Dosage: UNK, UNK
     Dates: start: 20100930
  4. OXYCODONE HCL [Concomitant]
     Dosage: 20 MG, UNK
     Route: 048
  5. OXYNORM [Concomitant]
     Dosage: 5 MG, UNK
     Route: 048
  6. GRANISETRON HCL [Concomitant]
     Dosage: 3 MG, DAILY (1/D)
     Dates: start: 20101001, end: 20101001
  7. DEXAMETHASONE [Concomitant]
     Dosage: 8 MG, DAILY (1/D)
     Dates: start: 20101001, end: 20101001

REACTIONS (1)
  - EPISTAXIS [None]
